FAERS Safety Report 5501806-8 (Version None)
Quarter: 2007Q4

REPORT INFORMATION
  Report Type: 
  Country: None (occurrence: None)
  Receive Date: 20071030
  Receipt Date: 20071019
  Transmission Date: 20080405
  Serious: Yes (Death, Other)
  Sender: FDA-Public Use
  Company Number: US-JNJFOC-20070305722

PATIENT
  Sex: Female
  Weight: 67.13 kg

DRUGS (7)
  1. REMICADE [Suspect]
     Indication: UVEITIS
     Route: 042
  2. REMICADE [Suspect]
     Indication: IRITIS
     Dosage: Q 8WKS - TOTAL OF 7 DOSES
     Route: 042
  3. REMICADE [Suspect]
     Indication: RHEUMATOID ARTHRITIS
     Dosage: Q8WKS
     Route: 042
  4. FOSAMAX [Concomitant]
  5. LORTAB [Concomitant]
  6. PREDNISONE [Concomitant]
  7. METHOTREXATE [Concomitant]

REACTIONS (2)
  - DEATH [None]
  - NON-HODGKIN'S LYMPHOMA [None]
